FAERS Safety Report 12587729 (Version 1)
Quarter: 2016Q3

REPORT INFORMATION
  Report Type: Spontaneous
  Country: US (occurrence: US)
  Receive Date: 20160725
  Receipt Date: 20160725
  Transmission Date: 20161109
  Serious: No
  Sender: FDA-Public Use
  Company Number: US-GLAXOSMITHKLINE-US2016102807

PATIENT
  Age: 47 Year
  Sex: Male

DRUGS (3)
  1. FLONASE [Suspect]
     Active Substance: FLUTICASONE PROPIONATE
     Indication: NASAL DRYNESS
     Dosage: UNK UNK, QD
  2. LORTAB (ACETAMINOPHEN + HYDROCODONE) [Concomitant]
     Indication: PAIN
     Dosage: UNK
  3. FLONASE [Suspect]
     Active Substance: FLUTICASONE PROPIONATE
     Indication: NASAL CRUSTING
     Dosage: 1 PUFF(S), QD

REACTIONS (9)
  - Gingival bleeding [Not Recovered/Not Resolved]
  - Off label use [Unknown]
  - Oral candidiasis [Not Recovered/Not Resolved]
  - Gingival pain [Not Recovered/Not Resolved]
  - Paraesthesia oral [Not Recovered/Not Resolved]
  - Oral mucosal exfoliation [Not Recovered/Not Resolved]
  - Mouth swelling [Not Recovered/Not Resolved]
  - Oral pain [Not Recovered/Not Resolved]
  - Tongue discolouration [Not Recovered/Not Resolved]
